FAERS Safety Report 12270938 (Version 1)
Quarter: 2016Q2

REPORT INFORMATION
  Report Type: Spontaneous
  Country: US (occurrence: US)
  Receive Date: 20160415
  Receipt Date: 20160415
  Transmission Date: 20160815
  Serious: No
  Sender: FDA-Public Use
  Company Number: US-ASTRAZENECA-2016SE30288

PATIENT
  Age: 71 Year
  Sex: Female
  Weight: 72.6 kg

DRUGS (2)
  1. SYMBICORT [Suspect]
     Active Substance: BUDESONIDE\FORMOTEROL FUMARATE DIHYDRATE
     Indication: COUGH
     Dosage: 160/4.5 MCG 1 PUFF ONCE DAILY
     Route: 055
     Dates: start: 201512, end: 201603
  2. DULERA [Concomitant]
     Active Substance: FORMOTEROL FUMARATE DIHYDRATE\MOMETASONE FUROATE
     Indication: COUGH
     Route: 055
     Dates: start: 201602

REACTIONS (7)
  - Wheezing [Unknown]
  - Cough [Not Recovered/Not Resolved]
  - Product use issue [Unknown]
  - Rhinitis [Not Recovered/Not Resolved]
  - Off label use [Unknown]
  - Sinusitis [Not Recovered/Not Resolved]
  - Viral infection [Not Recovered/Not Resolved]

NARRATIVE: CASE EVENT DATE: 201510
